FAERS Safety Report 10208213 (Version 1)
Quarter: 2014Q2

REPORT INFORMATION
  Report Type: Spontaneous
  Country: US (occurrence: None)
  Receive Date: 20140529
  Receipt Date: 20140529
  Transmission Date: 20141212
  Serious: Yes (Death)
  Sender: FDA-Public Use
  Company Number: None

PATIENT
  Age: 58 Year
  Sex: Female
  Weight: 86.8 kg

DRUGS (25)
  1. SOFOSBUVIR [Suspect]
     Route: 048
     Dates: start: 20140320, end: 20140411
  2. SIMEPREVIR [Suspect]
     Route: 048
     Dates: start: 20140320, end: 20140404
  3. ATOVAQUONE [Concomitant]
  4. NYSTATIN [Concomitant]
  5. PIPERACILLIN TAZOBACTAM [Concomitant]
  6. AMLODIPINE [Concomitant]
  7. METOPROLOL TARTRATE [Concomitant]
  8. INSULIN [Concomitant]
  9. ESCITALOPRAM [Concomitant]
  10. TACROLIMUS [Concomitant]
  11. CALCIUM CITRATE [Concomitant]
  12. DOCUSATE SODIUM [Concomitant]
  13. ESOMEPRAZOLE [Concomitant]
  14. ALBUMIN HUMAN [Concomitant]
  15. DARBEPOETIN ALFA [Concomitant]
  16. EVEROLIMUS [Concomitant]
  17. MAGNESIUM OXIDE [Concomitant]
  18. MYCOPHENOLIC ACID [Concomitant]
  19. PREDNISONE [Concomitant]
  20. SODIUM BICARBONATE [Concomitant]
  21. DARBEPOETIN [Concomitant]
  22. MORPHINE SULFATE [Concomitant]
  23. SUMATRIPTAN SUCCINATE [Concomitant]
  24. ZOSYN [Concomitant]
  25. GLUCAGON [Concomitant]

REACTIONS (6)
  - Cough [None]
  - Anaemia [None]
  - Urinary tract infection [None]
  - Renal failure [None]
  - Hepatic failure [None]
  - Treatment noncompliance [None]
